FAERS Safety Report 16861547 (Version 1)
Quarter: 2019Q3

REPORT INFORMATION
  Report Type: Report from Study
  Country: US (occurrence: US)
  Receive Date: 20190927
  Receipt Date: 20190927
  Transmission Date: 20191005
  Serious: Yes (Life-Threatening, Other)
  Sender: FDA-Public Use
  Company Number: US-RECRO GAINESVILLE LLC-REPH-2019-000203

PATIENT
  Age: 27 Year
  Sex: Male

DRUGS (1)
  1. VERAPAMIL HYDROCHLORIDE SUSTAINED RELEASE [Suspect]
     Active Substance: VERAPAMIL HYDROCHLORIDE
     Dosage: TOTAL DOSE 24,000 MILLIGRAM (MG)
     Route: 048

REACTIONS (13)
  - Tachycardia [Recovered/Resolved]
  - Renal tubular necrosis [Recovered/Resolved]
  - Confusional state [Recovered/Resolved]
  - Suicide attempt [Recovered/Resolved]
  - Hypotension [Recovered/Resolved]
  - Dyspnoea [Recovered/Resolved]
  - Atrioventricular block complete [Recovered/Resolved]
  - Acute respiratory distress syndrome [Recovered/Resolved]
  - Aspiration [Recovered/Resolved]
  - Anuria [Recovered/Resolved]
  - Bradycardia [Recovered/Resolved]
  - Agitation [Recovered/Resolved]
  - Vomiting [Recovered/Resolved]
